FAERS Safety Report 25678027 (Version 1)
Quarter: 2025Q3

REPORT INFORMATION
  Report Type: Spontaneous
  Country: AU (occurrence: AU)
  Receive Date: 20250813
  Receipt Date: 20250813
  Transmission Date: 20251020
  Serious: Yes (Other)
  Sender: SANDOZ
  Company Number: AU-SANDOZ-SDZ2025AU057239

PATIENT
  Sex: Female

DRUGS (3)
  1. ESTRADIOL [Suspect]
     Active Substance: ESTRADIOL
     Indication: Ovarian failure
     Route: 062
  2. ESTRADIOL [Suspect]
     Active Substance: ESTRADIOL
     Indication: Ovarian failure
     Route: 062
  3. ESTRADIOL [Concomitant]
     Active Substance: ESTRADIOL
     Indication: Ovarian failure
     Route: 062

REACTIONS (8)
  - Suicidal ideation [Unknown]
  - Cardiac disorder [Unknown]
  - Chest pain [Unknown]
  - Thirst [Unknown]
  - Depression [Unknown]
  - Drug ineffective [Unknown]
  - Product storage error [Unknown]
  - Expired product administered [Unknown]
